FAERS Safety Report 23912311 (Version 1)
Quarter: 2024Q2

REPORT INFORMATION
  Report Type: Spontaneous
  Country: US (occurrence: US)
  Receive Date: 20240528
  Receipt Date: 20240528
  Transmission Date: 20240715
  Serious: No
  Sender: FDA-Public Use
  Company Number: US-TAIHOP-2024-005275

PATIENT
  Sex: Female

DRUGS (2)
  1. LONSURF [Suspect]
     Active Substance: TIPIRACIL HYDROCHLORIDE\TRIFLURIDINE
     Indication: Colon cancer
     Dosage: CYCLE 3
     Route: 048
     Dates: start: 202403
  2. STIVARGA [Concomitant]
     Active Substance: REGORAFENIB\REGORAFENIB MONOHYDRATE
     Indication: Product used for unknown indication
     Dosage: 4*21

REACTIONS (1)
  - Dysphonia [Recovering/Resolving]
